FAERS Safety Report 7007935-4 (Version None)
Quarter: 2010Q3

REPORT INFORMATION
  Report Type: 
  Country: None (occurrence: None)
  Receive Date: 20100922
  Receipt Date: 20100916
  Transmission Date: 20110219
  Serious: Yes (Death, Other)
  Sender: FDA-Public Use
  Company Number: US-PFIZER INC-2010113315

PATIENT
  Sex: Female
  Weight: 31.746 kg

DRUGS (22)
  1. IRINOTECAN HCL [Suspect]
     Indication: COLORECTAL CANCER METASTATIC
     Dosage: UNK
     Dates: start: 20100101
  2. IRINOTECAN HCL [Suspect]
     Dosage: UNK
     Dates: start: 20100505
  3. XELODA [Suspect]
     Indication: COLORECTAL CANCER METASTATIC
     Dosage: UNK
     Dates: start: 20081218
  4. XELODA [Suspect]
     Dosage: UNK
     Dates: start: 20100101, end: 20100101
  5. AVASTIN [Suspect]
     Indication: COLORECTAL CANCER METASTATIC
     Dosage: 20 MG, UNK
     Route: 042
     Dates: start: 20070601
  6. AVASTIN [Suspect]
     Dosage: 20 MG, UNK
     Dates: start: 20070801, end: 20090101
  7. AVASTIN [Suspect]
     Dosage: 20 MG, UNK
     Route: 042
     Dates: start: 20100101
  8. FLUOROURACIL [Suspect]
     Indication: COLORECTAL CANCER METASTATIC
     Dosage: UNK
     Dates: start: 20090128, end: 20090901
  9. FLUOROURACIL [Suspect]
     Dosage: UNK
     Dates: start: 20100101
  10. LEUCOVORIN CALCIUM [Suspect]
     Indication: COLORECTAL CANCER METASTATIC
     Dosage: UNK
     Dates: start: 20090128, end: 20090901
  11. LEUCOVORIN CALCIUM [Suspect]
     Dosage: UNK
     Dates: start: 20100101
  12. ELOXATIN [Suspect]
     Indication: COLORECTAL CANCER METASTATIC
     Dosage: UNK
     Route: 042
     Dates: start: 20070701, end: 20070701
  13. ELOXATIN [Suspect]
     Dosage: UNK
     Route: 042
     Dates: start: 20070101, end: 20070101
  14. ELOXATIN [Suspect]
     Dosage: UNK
     Route: 042
     Dates: start: 20080601, end: 20080601
  15. ELOXATIN [Suspect]
     Dosage: UNK
     Route: 042
     Dates: start: 20081218, end: 20081218
  16. ELOXATIN [Suspect]
     Dosage: UNK
     Route: 042
     Dates: start: 20090513, end: 20090513
  17. ELOXATIN [Suspect]
     Dosage: UNK
     Dates: start: 20100101
  18. ELOXATIN [Suspect]
     Dosage: UNK
     Dates: start: 20100501
  19. DEXAMETHASONE [Concomitant]
  20. ZOFRAN [Concomitant]
  21. PRILOSEC [Concomitant]
     Indication: ABDOMINAL DISCOMFORT
     Dosage: UNK
  22. PRILOSEC [Concomitant]
     Indication: DYSPEPSIA

REACTIONS (10)
  - DEATH [None]
  - DRUG HYPERSENSITIVITY [None]
  - DRUG INTOLERANCE [None]
  - DRUG TOXICITY [None]
  - LIMB DEFORMITY [None]
  - NEPHROLITHIASIS [None]
  - SKIN EXFOLIATION [None]
  - STOMATITIS [None]
  - WHITE BLOOD CELL COUNT DECREASED [None]
  - WOUND DEHISCENCE [None]
